FAERS Safety Report 21371676 (Version 1)
Quarter: 2022Q3

REPORT INFORMATION
  Report Type: Spontaneous
  Country: FR (occurrence: None)
  Receive Date: 20220923
  Receipt Date: 20220923
  Transmission Date: 20221027
  Serious: Yes (Hospitalization)
  Sender: FDA-Public Use
  Company Number: FR-ROCHE-3184291

PATIENT
  Age: 90 Year
  Sex: Female
  Weight: 66 kg

DRUGS (16)
  1. RIVOTRIL [Suspect]
     Active Substance: CLONAZEPAM
     Indication: Epilepsy
     Route: 042
     Dates: start: 20220812, end: 20220819
  2. FOSPHENYTOIN SODIUM [Suspect]
     Active Substance: FOSPHENYTOIN SODIUM
     Indication: Status epilepticus
     Dosage: 15MG/KG FOR 30 MIN
     Route: 042
     Dates: start: 20220812, end: 20220812
  3. INNOHEP [Suspect]
     Active Substance: TINZAPARIN SODIUM
     Indication: Anticoagulant therapy
     Dosage: 14 000 UI ANTI-XA/0,7 ML
     Route: 058
     Dates: start: 20220813, end: 20220818
  4. KEPPRA [Suspect]
     Active Substance: LEVETIRACETAM
     Indication: Epilepsy
     Dosage: 3000 A 750MG/JOUR, 750MG/D FOR 5 DAYS
     Route: 048
     Dates: start: 20220811, end: 20220816
  5. KEPPRA [Suspect]
     Active Substance: LEVETIRACETAM
     Route: 042
  6. KEPPRA [Suspect]
     Active Substance: LEVETIRACETAM
     Dosage: DOSE AT 3G DECREASING TO 750MG/D FOR 5 DAYS
     Route: 042
  7. KARDEGIC [Concomitant]
     Active Substance: ASPIRIN DL-LYSINE
  8. FLECAINIDE [Concomitant]
     Active Substance: FLECAINIDE
  9. ELIQUIS [Concomitant]
     Active Substance: APIXABAN
  10. ZOPICLONE [Concomitant]
     Active Substance: ZOPICLONE
  11. ARTISIAL [Concomitant]
     Active Substance: CALCIUM CHLORIDE\MAGNESIUM CHLORIDE\POTASSIUM CHLORIDE\POTASSIUM PHOSPHATE, DIBASIC\POTASSIUM PHOSPH
  12. VITAMIN A [Concomitant]
     Active Substance: VITAMIN A
  13. POLYETHYLENE GLYCOL 4000 [Concomitant]
     Active Substance: POLYETHYLENE GLYCOL 4000
  14. DICLOFENAC [Concomitant]
     Active Substance: DICLOFENAC
  15. FOLIC ACID [Concomitant]
     Active Substance: FOLIC ACID
  16. FUROSEMIDE [Concomitant]
     Active Substance: FUROSEMIDE

REACTIONS (1)
  - Erythema [Recovered/Resolved]

NARRATIVE: CASE EVENT DATE: 20220813
